FAERS Safety Report 6659927-2 (Version None)
Quarter: 2010Q1

REPORT INFORMATION
  Report Type: 
  Country: None (occurrence: None)
  Receive Date: 20100330
  Receipt Date: 20100325
  Transmission Date: 20100710
  Serious: Yes (Hospitalization)
  Sender: FDA-Public Use
  Company Number: US-BRISTOL-MYERS SQUIBB COMPANY-13430871

PATIENT
  Age: 5 Year
  Sex: Male
  Weight: 18 kg

DRUGS (1)
  1. IXEMPRA KIT [Suspect]
     Indication: NEPHROBLASTOMA
     Dosage: 8MG/M2 CYCLE-21 DAYS OVER 1 HR ON DAY1-5
     Route: 042
     Dates: start: 20060531, end: 20060604

REACTIONS (6)
  - CHILLS [None]
  - MYALGIA [None]
  - PERIPHERAL SENSORY NEUROPATHY [None]
  - PYREXIA [None]
  - SINUS TACHYCARDIA [None]
  - TACHYPNOEA [None]
